FAERS Safety Report 17940806 (Version 1)
Quarter: 2020Q2

REPORT INFORMATION
  Report Type: Spontaneous
  Country: NL (occurrence: NL)
  Receive Date: 20200624
  Receipt Date: 20200624
  Transmission Date: 20200714
  Serious: Yes (Other)
  Sender: FDA-Public Use
  Company Number: NL-FRESENIUS KABI-FK202006396

PATIENT
  Age: 33 Year
  Sex: Male

DRUGS (2)
  1. CLEMASTINE [Suspect]
     Active Substance: CLEMASTINE
     Indication: PAIN
     Route: 050
  2. MORPHINE (MANUFACTURER UNKNOWN) [Suspect]
     Active Substance: MORPHINE
     Indication: PAIN
     Route: 050

REACTIONS (2)
  - Incorrect route of product administration [Recovered/Resolved]
  - Embolia cutis medicamentosa [Recovered/Resolved]
